FAERS Safety Report 4523690-1 (Version None)
Quarter: 2004Q4

REPORT INFORMATION
  Report Type: 
  Country: None (occurrence: None)
  Receive Date: 20041210
  Receipt Date: 20041025
  Transmission Date: 20050328
  Serious: Yes (Hospitalization)
  Sender: FDA-Public Use
  Company Number: JP-GLAXOSMITHKLINE-B0349715A

PATIENT
  Age: 51 Year
  Sex: Female
  Weight: 47 kg

DRUGS (12)
  1. VALTREX [Suspect]
     Indication: HERPES ZOSTER
     Dosage: 1000MG THREE TIMES PER DAY
     Route: 048
     Dates: start: 20041022, end: 20041025
  2. NEORAL [Concomitant]
     Indication: DERMATOMYOSITIS
     Route: 048
     Dates: start: 20040521
  3. PREDNISOLONE [Concomitant]
     Route: 048
     Dates: start: 20040522
  4. BAKTAR [Concomitant]
     Route: 048
     Dates: start: 20040519
  5. JUVELA NICOTINATE [Concomitant]
     Dosage: 300MG PER DAY
     Route: 048
     Dates: start: 20040709
  6. ALFAROL [Concomitant]
     Indication: OSTEOPOROSIS
     Dosage: .25MCG PER DAY
     Route: 048
     Dates: start: 20040726
  7. GASTER D [Concomitant]
     Indication: GASTRIC ULCER
     Dosage: 20MG PER DAY
     Route: 048
     Dates: start: 20040519
  8. GATIFLO [Concomitant]
     Dosage: 400MG PER DAY
     Route: 048
     Dates: start: 20040921
  9. AMLODIPINE [Concomitant]
     Indication: HYPERTENSION
     Dosage: 5MG PER DAY
     Route: 048
     Dates: start: 20040929
  10. DIOVAN [Concomitant]
     Indication: HYPERTENSION
     Dosage: 80MG PER DAY
     Route: 048
     Dates: start: 20040606
  11. HYPEN [Concomitant]
     Dosage: 400MG PER DAY
     Route: 048
     Dates: start: 20041005
  12. CALCIUM LACTATE [Concomitant]
     Indication: OSTEOPOROSIS
     Dosage: 2G PER DAY
     Route: 048
     Dates: start: 20041017

REACTIONS (6)
  - CLONIC CONVULSION [None]
  - COMA [None]
  - DEPRESSED LEVEL OF CONSCIOUSNESS [None]
  - EATING DISORDER [None]
  - ENCEPHALOPATHY [None]
  - MENINGITIS [None]
